FAERS Safety Report 5887604-4 (Version None)
Quarter: 2008Q3

REPORT INFORMATION
  Report Type: 
  Country: None (occurrence: None)
  Receive Date: 20080918
  Receipt Date: 20080818
  Transmission Date: 20090109
  Serious: No
  Sender: FDA-Public Use
  Company Number: US-BAYER-200819967NA

PATIENT
  Age: 27 Year
  Sex: Female
  Weight: 113 kg

DRUGS (1)
  1. MIRENA [Suspect]
     Indication: CONTRACEPTION
     Route: 015
     Dates: start: 20080123, end: 20080410

REACTIONS (6)
  - COITAL BLEEDING [None]
  - DEPRESSION [None]
  - DYSPNOEA [None]
  - GENITAL HAEMORRHAGE [None]
  - LIBIDO DECREASED [None]
  - PANIC ATTACK [None]
